FAERS Safety Report 24265553 (Version 1)
Quarter: 2024Q3

REPORT INFORMATION
  Report Type: Spontaneous
  Country: CN (occurrence: CN)
  Receive Date: 20240829
  Receipt Date: 20240829
  Transmission Date: 20241016
  Serious: Yes (Other)
  Sender: BEIGENE
  Company Number: CN-BEIGENE-BGN-2024-013248

PATIENT

DRUGS (3)
  1. TISLELIZUMAB [Suspect]
     Active Substance: TISLELIZUMAB
     Indication: Oesophageal neoplasm
     Dosage: 200 MILLIGRAM
     Route: 041
     Dates: start: 20240725
  2. CISPLATIN [Suspect]
     Active Substance: CISPLATIN
     Indication: Oesophageal neoplasm
     Dosage: 100 MILLIGRAM
     Route: 041
     Dates: start: 20240725
  3. PACLITAXEL [Suspect]
     Active Substance: PACLITAXEL
     Indication: Oesophageal neoplasm
     Dosage: 348 MILLIGRAM
     Route: 041
     Dates: start: 20240725

REACTIONS (3)
  - Eating disorder [Unknown]
  - Nausea [Unknown]
  - Vomiting [Unknown]

NARRATIVE: CASE EVENT DATE: 20240726
